FAERS Safety Report 24110756 (Version 1)
Quarter: 2024Q3

REPORT INFORMATION
  Report Type: Spontaneous
  Country: US (occurrence: US)
  Receive Date: 20240718
  Receipt Date: 20240718
  Transmission Date: 20241017
  Serious: Yes (Other)
  Sender: AMGEN
  Company Number: US-AMGEN-USASP2024137495

PATIENT
  Age: 60 Year
  Sex: Male

DRUGS (3)
  1. RITUXIMAB [Suspect]
     Active Substance: RITUXIMAB
     Indication: Chronic lymphocytic leukaemia
     Dosage: UNK
     Route: 065
  2. FLUDARABINE [Concomitant]
     Active Substance: FLUDARABINE PHOSPHATE
  3. VENETOCLAX [Concomitant]
     Active Substance: VENETOCLAX

REACTIONS (5)
  - Chronic lymphocytic leukaemia recurrent [Unknown]
  - Chorioretinitis [Unknown]
  - Retinal haemorrhage [Unknown]
  - Macular oedema [Unknown]
  - White blood cell count increased [Unknown]
